FAERS Safety Report 16336712 (Version 1)
Quarter: 2019Q2

REPORT INFORMATION
  Report Type: Spontaneous
  Country: US (occurrence: US)
  Receive Date: 20190521
  Receipt Date: 20190521
  Transmission Date: 20190711
  Serious: Yes (Other)
  Sender: FDA-Public Use
  Company Number: US-ENDO PHARMACEUTICALS INC-2019-104761

PATIENT

DRUGS (1)
  1. XIAFLEX [Suspect]
     Active Substance: COLLAGENASE CLOSTRIDIUM HISTOLYTICUM
     Indication: DUPUYTREN^S CONTRACTURE
     Dosage: UNK UNKNOWN, FIFTH FINGER OF MP JOINT
     Route: 026
     Dates: start: 2019

REACTIONS (2)
  - Hand fracture [Unknown]
  - Tendon disorder [Unknown]

NARRATIVE: CASE EVENT DATE: 2019
